FAERS Safety Report 11513855 (Version 1)
Quarter: 2015Q3

REPORT INFORMATION
  Report Type: Spontaneous
  Country: US (occurrence: US)
  Receive Date: 20150916
  Receipt Date: 20150916
  Transmission Date: 20151125
  Serious: No
  Sender: FDA-Public Use
  Company Number: US-PFIZER INC-2015291849

PATIENT
  Age: 80 Year
  Sex: Female

DRUGS (1)
  1. COLESTIPOL HCL [Suspect]
     Active Substance: COLESTIPOL HYDROCHLORIDE
     Indication: BLOOD CHOLESTEROL
     Dosage: 2 MG, 2X/DAY (1GM TABLETS, TWO TABLETS TWICE A DAY)
     Route: 048

REACTIONS (9)
  - Dyspnoea [Not Recovered/Not Resolved]
  - Abdominal distension [Not Recovered/Not Resolved]
  - Blood alkaline phosphatase increased [Not Recovered/Not Resolved]
  - Musculoskeletal pain [Not Recovered/Not Resolved]
  - Dyspepsia [Recovering/Resolving]
  - Dysphonia [Not Recovered/Not Resolved]
  - Wheezing [Not Recovered/Not Resolved]
  - Transaminases increased [Unknown]
  - Constipation [Not Recovered/Not Resolved]
